FAERS Safety Report 7808545-9 (Version None)
Quarter: 2011Q4

REPORT INFORMATION
  Report Type: 
  Country: None (occurrence: None)
  Receive Date: 20111012
  Receipt Date: 20111003
  Transmission Date: 20120403
  Serious: Yes (Other)
  Sender: FDA-Public Use
  Company Number: JP-JNJFOC-20110706694

PATIENT
  Age: 21 Year
  Sex: Female

DRUGS (3)
  1. TOPIRAMATE [Suspect]
     Indication: EPILEPSY
     Route: 048
     Dates: start: 20110129, end: 20110422
  2. TEGRETOL [Concomitant]
     Indication: EPILEPSY
     Route: 048
     Dates: start: 20030101
  3. ZONISAMIDE [Suspect]
     Indication: EPILEPSY
     Route: 048
     Dates: start: 20030101

REACTIONS (1)
  - HALLUCINATION, AUDITORY [None]
